FAERS Safety Report 4855884-X (Version None)
Quarter: 2005Q4

REPORT INFORMATION
  Report Type: 
  Country: None (occurrence: None)
  Receive Date: 20051216
  Receipt Date: 20051208
  Transmission Date: 20060501
  Serious: Yes (Death)
  Sender: FDA-Public Use
  Company Number: CH-SANOFI-SYNTHELABO-A01200508614

PATIENT
  Age: 61 Year
  Sex: Male
  Weight: 90 kg

DRUGS (4)
  1. ELOXATIN [Suspect]
     Indication: COLON CANCER
     Route: 042
     Dates: start: 20051025, end: 20051025
  2. ZOFRAN [Concomitant]
     Route: 042
     Dates: start: 20051025, end: 20051025
  3. DEXAMETHASONE [Concomitant]
     Route: 065
     Dates: start: 20051025, end: 20051025
  4. INSULIN [Concomitant]
     Dosage: UNKNOWN
     Route: 065

REACTIONS (10)
  - ARTHRALGIA [None]
  - BACK PAIN [None]
  - BLOOD LACTIC ACID INCREASED [None]
  - COOMBS DIRECT TEST POSITIVE [None]
  - INTRAVASCULAR HAEMOLYSIS [None]
  - METABOLIC ACIDOSIS [None]
  - MULTI-ORGAN FAILURE [None]
  - NAUSEA [None]
  - PYREXIA [None]
  - RENAL FAILURE ACUTE [None]
